FAERS Safety Report 7511330-9 (Version None)
Quarter: 2011Q2

REPORT INFORMATION
  Report Type: 
  Country: None (occurrence: None)
  Receive Date: 20110531
  Receipt Date: 20110120
  Transmission Date: 20111010
  Serious: Yes (Other)
  Sender: FDA-Public Use
  Company Number: US-BAYER-201030547NA

PATIENT
  Age: 18 Year
  Sex: Female
  Weight: 63.492 kg

DRUGS (8)
  1. PHENAZOPYRIDINE HCL TAB [Concomitant]
     Dosage: UNK
     Dates: start: 20070615
  2. YASMIN [Suspect]
     Dosage: UNK
     Dates: start: 20070207
  3. LEVAQUIN [Concomitant]
     Indication: PYELONEPHRITIS
     Dosage: UNK
     Dates: start: 20070615
  4. YASMIN [Suspect]
     Indication: ORAL CONTRACEPTION
     Dosage: UNK UNK, UNK
     Route: 048
     Dates: start: 20061017, end: 20061108
  5. MORPHINE [Concomitant]
     Indication: PYELONEPHRITIS
     Dosage: UNK
     Dates: start: 20070615
  6. ORTHO TRI-CYCLEN [Concomitant]
  7. ALBUTEROL SULFATE AUTOHALER [Concomitant]
  8. ALLEGRA [Concomitant]

REACTIONS (1)
  - CHOLECYSTECTOMY [None]
